FAERS Safety Report 9817375 (Version 2)
Quarter: 2016Q2

REPORT INFORMATION
  Report Type: Spontaneous
  Country: FR (occurrence: FR)
  Receive Date: 20140115
  Receipt Date: 20160415
  Transmission Date: 20160815
  Serious: Yes (Hospitalization, Other)
  Sender: FDA-Public Use
  Company Number: FR-ASTRAZENECA-2014SE02165

PATIENT
  Age: 69 Year
  Sex: Male
  Weight: 66 kg

DRUGS (8)
  1. XEROQUEL [Suspect]
     Active Substance: QUETIAPINE FUMARATE
     Indication: BIPOLAR DISORDER
     Route: 048
     Dates: end: 20131213
  2. DEPAMIDE [Suspect]
     Active Substance: VALPROMIDE
     Indication: BIPOLAR DISORDER
     Route: 048
     Dates: start: 20131207, end: 20131213
  3. TERALITHE [Concomitant]
     Active Substance: LITHIUM CARBONATE
     Route: 048
  4. PERINDOPRIL [Concomitant]
     Active Substance: PERINDOPRIL
     Route: 048
  5. XEROQUEL [Suspect]
     Active Substance: QUETIAPINE FUMARATE
     Indication: BIPOLAR DISORDER
     Route: 048
     Dates: start: 20131213
  6. SEROPLEX [Concomitant]
     Active Substance: ESCITALOPRAM OXALATE
     Route: 048
  7. DEPAMIDE [Suspect]
     Active Substance: VALPROMIDE
     Indication: BIPOLAR DISORDER
     Route: 048
  8. TEMESTA [Concomitant]
     Active Substance: LORAZEPAM
     Route: 048

REACTIONS (7)
  - Asterixis [Recovered/Resolved]
  - Hyperammonaemic encephalopathy [Recovered/Resolved]
  - Hyperammonaemia [Recovered/Resolved]
  - Ataxia [Recovered/Resolved]
  - Somnolence [Recovered/Resolved]
  - Psychomotor retardation [Recovered/Resolved]
  - Sleep phase rhythm disturbance [Recovered/Resolved]

NARRATIVE: CASE EVENT DATE: 20131208
